FAERS Safety Report 7204160-9 (Version None)
Quarter: 2010Q4

REPORT INFORMATION
  Report Type: 
  Country: None (occurrence: None)
  Receive Date: 20101230
  Receipt Date: 20101223
  Transmission Date: 20110411
  Serious: Yes (Other)
  Sender: FDA-Public Use
  Company Number: IT-TEVA-261088ISR

PATIENT
  Age: 67 Year
  Sex: Male

DRUGS (2)
  1. DICLOFENAC [Suspect]
     Indication: BACK PAIN
     Route: 030
     Dates: start: 20101129, end: 20101205
  2. THIOCOLCHICOSIDE [Suspect]
     Indication: BACK PAIN
     Route: 030
     Dates: start: 20101129, end: 20101205

REACTIONS (1)
  - HAEMATOMA [None]
